FAERS Safety Report 16903174 (Version 1)
Quarter: 2019Q4

REPORT INFORMATION
  Report Type: Spontaneous
  Country: US (occurrence: US)
  Receive Date: 20190816
  Receipt Date: 20190816
  Transmission Date: 20200122
  Serious: No
  Sender: FDA-Public Use
  Company Number: None

PATIENT
  Age: 39 Year
  Sex: Male

DRUGS (1)
  1. INFLECTRA [Suspect]
     Active Substance: INFLIXIMAB-DYYB
     Indication: COLITIS ULCERATIVE
     Dosage: ?          OTHER FREQUENCY:UNKNOWN;?
     Route: 041
     Dates: start: 201908

REACTIONS (3)
  - Therapy cessation [None]
  - Product prescribing error [None]
  - Product distribution issue [None]

NARRATIVE: CASE EVENT DATE: 20190814
